FAERS Safety Report 11059332 (Version 1)
Quarter: 2015Q2

REPORT INFORMATION
  Report Type: Spontaneous
  Country: US (occurrence: None)
  Receive Date: 20150422
  Receipt Date: 20150422
  Transmission Date: 20150821
  Serious: No
  Sender: FDA-Public Use
  Company Number: None

PATIENT
  Age: 54 Year
  Sex: Male

DRUGS (2)
  1. BETASERON [Suspect]
     Active Substance: INTERFERON BETA-1B
     Indication: MULTIPLE SCLEROSIS
     Route: 058
  2. NUVIGIL [Concomitant]
     Active Substance: ARMODAFINIL

REACTIONS (2)
  - Depression [None]
  - Anxiety [None]

NARRATIVE: CASE EVENT DATE: 20150302
